FAERS Safety Report 9321050 (Version 1)
Quarter: 2013Q2

REPORT INFORMATION
  Report Type: Not Available
  Country: IT (occurrence: None)
  Receive Date: 20130528
  Receipt Date: 20130528
  Transmission Date: 20140414
  Serious: Yes (Other)
  Sender: FDA-Public Use
  Company Number: 2012AP002736

PATIENT
  Age: 19 Year
  Sex: Male

DRUGS (1)
  1. FERRIPOX [Suspect]
     Indication: THALASSAEMIA BETA
     Route: 048
     Dates: start: 20101227, end: 20111130

REACTIONS (1)
  - Leukopenia [None]
